FAERS Safety Report 7574033-0 (Version None)
Quarter: 2011Q2

REPORT INFORMATION
  Report Type: 
  Country: None (occurrence: None)
  Receive Date: 20110627
  Receipt Date: 20110617
  Transmission Date: 20111010
  Serious: Yes (Death, Hospitalization, Other)
  Sender: FDA-Public Use
  Company Number: JP-ACTELION-A-JP2009-27144

PATIENT
  Sex: Female
  Weight: 29 kg

DRUGS (17)
  1. TRACLEER [Suspect]
     Indication: PULMONARY HYPERTENSION
     Dosage: 31.25 MG, TID
     Route: 048
     Dates: start: 20090718, end: 20090719
  2. AMBROXOL HYDROCHLORIDE [Concomitant]
  3. DIFLUCORTOLONE VALERATE [Concomitant]
  4. OXYGEN [Concomitant]
  5. TRACLEER [Suspect]
     Dosage: 31.25 MG, BID
     Route: 048
     Dates: start: 20090920, end: 20100901
  6. BERAPROST SODIUM [Suspect]
     Dosage: UNK
     Dates: start: 20090918, end: 20090920
  7. TRACLEER [Suspect]
     Dosage: 31.25 MG, BID
     Route: 048
     Dates: start: 20090604, end: 20090717
  8. ALBUTEROL SULATE [Concomitant]
  9. ANTIBIOTICS-RESISTANT LACTIC ACID BACTERIAE [Concomitant]
  10. TIQUIZIUM BROMIDE [Concomitant]
  11. CLOTIAZEPAM [Concomitant]
  12. SODIUM PICOSULFATE [Concomitant]
  13. TRACLEER [Suspect]
     Dosage: 31.25 MG, BID
     Route: 048
     Dates: start: 20090720, end: 20090918
  14. CLARITHROMYCIN [Concomitant]
  15. THEOPHYLLINE [Concomitant]
  16. ETIZOLAM [Concomitant]
  17. FLUTICASONE PROPIONATE [Concomitant]

REACTIONS (10)
  - RESPIRATORY FAILURE [None]
  - CARBON DIOXIDE INCREASED [None]
  - RESTLESS LEGS SYNDROME [None]
  - BACK PAIN [None]
  - DELIRIUM [None]
  - CARDIAC FAILURE [None]
  - PNEUMONIA [None]
  - HEADACHE [None]
  - ARTHRALGIA [None]
  - DYSPNOEA [None]
